FAERS Safety Report 7125370-5 (Version None)
Quarter: 2010Q4

REPORT INFORMATION
  Report Type: 
  Country: None (occurrence: None)
  Receive Date: 20101129
  Receipt Date: 20101118
  Transmission Date: 20110411
  Serious: Yes (Disabling)
  Sender: FDA-Public Use
  Company Number: US-ROCHE-711019

PATIENT
  Sex: Female
  Weight: 77.1 kg

DRUGS (2)
  1. AVASTIN [Suspect]
     Route: 031
     Dates: start: 20100512
  2. LIPITOR [Concomitant]
     Dosage: DRUG: LIPITOR X YEARS

REACTIONS (3)
  - BLOOD PRESSURE INCREASED [None]
  - DEAFNESS UNILATERAL [None]
  - NERVE INJURY [None]
